FAERS Safety Report 7078138-2 (Version None)
Quarter: 2010Q4

REPORT INFORMATION
  Report Type: 
  Country: None (occurrence: None)
  Receive Date: 20101102
  Receipt Date: 20101025
  Transmission Date: 20110411
  Serious: No
  Sender: FDA-Public Use
  Company Number: US-BIOGENIDEC-2010BI037771

PATIENT
  Age: 29 Year
  Sex: Female

DRUGS (1)
  1. TYSABRI [Suspect]
     Indication: MULTIPLE SCLEROSIS
     Route: 042
     Dates: start: 20080725

REACTIONS (7)
  - ABDOMINAL PAIN UPPER [None]
  - AMENORRHOEA [None]
  - BIPOLAR DISORDER [None]
  - DEPRESSION [None]
  - DIZZINESS [None]
  - HORMONE LEVEL ABNORMAL [None]
  - NAUSEA [None]
